FAERS Safety Report 7892538-X (Version None)
Quarter: 2011Q4

REPORT INFORMATION
  Report Type: 
  Country: None (occurrence: None)
  Receive Date: 20111102
  Receipt Date: 20111014
  Transmission Date: 20120403
  Serious: No
  Sender: FDA-Public Use
  Company Number: 2011SP044777

PATIENT
  Age: 21 Year
  Sex: Female

DRUGS (2)
  1. SAPHRIS [Suspect]
     Indication: BIPOLAR DISORDER
     Dosage: 5 MG 10 MG
  2. ZYPREXA [Concomitant]

REACTIONS (2)
  - RASH GENERALISED [None]
  - ARTHROPOD BITE [None]
